FAERS Safety Report 23218554 (Version 2)
Quarter: 2023Q4

REPORT INFORMATION
  Report Type: Report from Study
  Country: US (occurrence: US)
  Receive Date: 20231122
  Receipt Date: 20231224
  Transmission Date: 20240109
  Serious: Yes (Other)
  Sender: FDA-Public Use
  Company Number: US-ABBVIE-5498253

PATIENT
  Age: 66 Year
  Sex: Male

DRUGS (1)
  1. IMBRUVICA [Suspect]
     Active Substance: IBRUTINIB
     Indication: Chronic lymphocytic leukaemia
     Route: 048
     Dates: start: 20181107

REACTIONS (5)
  - Knee arthroplasty [Recovering/Resolving]
  - Procedural pain [Not Recovered/Not Resolved]
  - Thinking abnormal [Unknown]
  - Memory impairment [Unknown]
  - Dyslexia [Unknown]

NARRATIVE: CASE EVENT DATE: 20231101
